FAERS Safety Report 4850490-5 (Version None)
Quarter: 2005Q4

REPORT INFORMATION
  Report Type: 
  Country: None (occurrence: None)
  Receive Date: 20051125
  Receipt Date: 20050830
  Transmission Date: 20060501
  Serious: Yes (Other)
  Sender: FDA-Public Use
  Company Number: HQWYE279407SEP05

PATIENT
  Age: 18 Month
  Sex: Female
  Weight: 10.44 kg

DRUGS (1)
  1. PREMARIN [Suspect]
     Dosage: TOPICAL
     Route: 061

REACTIONS (1)
  - ACCIDENTAL EXPOSURE [None]
